FAERS Safety Report 9891534 (Version 1)
Quarter: 2014Q1

REPORT INFORMATION
  Report Type: Report from Study
  Country: US (occurrence: US)
  Receive Date: 20140212
  Receipt Date: 20140212
  Transmission Date: 20141002
  Serious: Yes (Other)
  Sender: FDA-Public Use
  Company Number: US-ABBVIE-14P-163-1198371-00

PATIENT
  Sex: Female
  Weight: 88.53 kg

DRUGS (1)
  1. LUPRON [Suspect]
     Indication: ENDOMETRIOSIS
     Route: 030
     Dates: start: 2010

REACTIONS (7)
  - Hysterectomy [Recovered/Resolved]
  - Hot flush [Recovered/Resolved]
  - Depression [Unknown]
  - Mood swings [Not Recovered/Not Resolved]
  - Abdominal pain lower [Recovered/Resolved]
  - Diarrhoea [Recovered/Resolved]
  - Ovarian cyst [Unknown]
